FAERS Safety Report 7786057-9 (Version None)
Quarter: 2011Q3

REPORT INFORMATION
  Report Type: 
  Country: None (occurrence: None)
  Receive Date: 20110929
  Receipt Date: 20110916
  Transmission Date: 20111222
  Serious: Yes (Hospitalization, Other)
  Sender: FDA-Public Use
  Company Number: US-ELI_LILLY_AND_COMPANY-US201109005327

PATIENT
  Sex: Female

DRUGS (10)
  1. VITAMIN TAB [Concomitant]
  2. FORTEO [Suspect]
     Indication: OSTEOPOROSIS
     Dosage: 20 UG, QD
     Route: 065
     Dates: start: 20100301
  3. VICODIN [Concomitant]
     Indication: MIGRAINE
  4. FERROUS SULFATE TAB [Concomitant]
  5. OMEPRAZOLE [Concomitant]
     Indication: GASTROOESOPHAGEAL REFLUX DISEASE
  6. NAPROXEN [Concomitant]
     Dosage: UNK
     Dates: start: 20080101
  7. DEPAKOTE [Concomitant]
     Indication: MIGRAINE
  8. LORAZEPAM [Concomitant]
     Indication: ANXIETY
  9. ZOLOFT [Concomitant]
     Indication: DEPRESSION
  10. ASPIRIN [Concomitant]

REACTIONS (6)
  - FEMUR FRACTURE [None]
  - TRANSFUSION [None]
  - BLOOD DISORDER [None]
  - FALL [None]
  - POST PROCEDURAL HAEMATOMA [None]
  - PAIN [None]
